FAERS Safety Report 21470351 (Version 2)
Quarter: 2022Q4

REPORT INFORMATION
  Report Type: Spontaneous
  Country: JP (occurrence: JP)
  Receive Date: 20221018
  Receipt Date: 20221107
  Transmission Date: 20230113
  Serious: Yes (Death, Hospitalization, Other)
  Sender: FDA-Public Use
  Company Number: JP-MSD-2210JPN001758J

PATIENT
  Age: 76 Year
  Sex: Male

DRUGS (5)
  1. KEYTRUDA [Suspect]
     Active Substance: PEMBROLIZUMAB
     Indication: Bladder cancer
     Dosage: UNK
     Route: 065
  2. KEYTRUDA [Suspect]
     Active Substance: PEMBROLIZUMAB
     Indication: Metastases to lung
  3. JANUVIA [Suspect]
     Active Substance: SITAGLIPTIN PHOSPHATE
     Indication: Diabetes mellitus
     Route: 065
  4. ENFORTUMAB VEDOTIN [Suspect]
     Active Substance: ENFORTUMAB VEDOTIN
     Indication: Transitional cell carcinoma
     Dosage: 1.25 MILLIGRAM/KILOGRAM
     Route: 041
     Dates: start: 20220913, end: 20221004
  5. ENFORTUMAB VEDOTIN [Suspect]
     Active Substance: ENFORTUMAB VEDOTIN
     Indication: Metastases to lung

REACTIONS (8)
  - Brain contusion [Fatal]
  - Completed suicide [Fatal]
  - Diabetes mellitus [Unknown]
  - Diabetes mellitus inadequate control [Unknown]
  - Generalised oedema [Unknown]
  - Malignant neoplasm progression [Unknown]
  - Immune-mediated thyroiditis [Unknown]
  - Depression [Unknown]

NARRATIVE: CASE EVENT DATE: 20221005
